FAERS Safety Report 9835279 (Version 2)
Quarter: 2014Q2

REPORT INFORMATION
  Report Type: Spontaneous
  Country: US (occurrence: US)
  Receive Date: 20140122
  Receipt Date: 20140424
  Transmission Date: 20141212
  Serious: No
  Sender: FDA-Public Use
  Company Number: US-BRISTOL-MYERS SQUIBB COMPANY-19916485

PATIENT
  Age: 69 Year
  Sex: Female
  Weight: 57.14 kg

DRUGS (5)
  1. ELIQUIS [Suspect]
     Indication: ATRIAL FIBRILLATION
     Route: 048
     Dates: start: 20131122
  2. CRESTOR [Concomitant]
  3. CARVEDILOL [Concomitant]
  4. DIGOXIN [Concomitant]
  5. LISINOPRIL [Concomitant]

REACTIONS (1)
  - Arthralgia [Unknown]
